FAERS Safety Report 15408947 (Version 1)
Quarter: 2018Q3

REPORT INFORMATION
  Report Type: Spontaneous
  Country: US (occurrence: US)
  Receive Date: 20180920
  Receipt Date: 20180920
  Transmission Date: 20181010
  Serious: Yes (Other)
  Sender: FDA-Public Use
  Company Number: US-UNICHEM PHARMACEUTICALS (USA) INC-UCM201808-000201

PATIENT
  Sex: Female
  Weight: 90.71 kg

DRUGS (15)
  1. LAMOTRIGINE. [Suspect]
     Active Substance: LAMOTRIGINE
     Indication: SEIZURE
     Dates: start: 20180615
  2. LAMOTRIGINE. [Suspect]
     Active Substance: LAMOTRIGINE
     Dates: start: 20180613
  3. OMEPRAZOLE. [Concomitant]
     Active Substance: OMEPRAZOLE
     Indication: CARDIAC VALVE DISEASE
  4. NEURONTIN [Concomitant]
     Active Substance: GABAPENTIN
     Indication: NEURALGIA
  5. ATENOLOL. [Concomitant]
     Active Substance: ATENOLOL
  6. ALPRAZOLAM. [Concomitant]
     Active Substance: ALPRAZOLAM
     Indication: ANXIETY
  7. BELSOMRA [Concomitant]
     Active Substance: SUVOREXANT
     Indication: SLEEP DISORDER
  8. POLYETHYLENE GLYCOL [Concomitant]
     Active Substance: POLYETHYLENE GLYCOLS
     Indication: DYSPEPSIA
  9. VIMPAT [Concomitant]
     Active Substance: LACOSAMIDE
  10. ALPRAZOLAM. [Concomitant]
     Active Substance: ALPRAZOLAM
     Indication: PANIC ATTACK
  11. KEPPRA [Concomitant]
     Active Substance: LEVETIRACETAM
  12. LAMOTRIGINE. [Suspect]
     Active Substance: LAMOTRIGINE
     Dosage: 100 MG IN THE MORNING (4 PILLS OF 25MG) AND 50 MG AT NIGHT (2 PILLS OF 25 MG).
  13. OMEPRAZOLE. [Concomitant]
     Active Substance: OMEPRAZOLE
     Indication: DYSPEPSIA
  14. LAMOTRIGINE. [Suspect]
     Active Substance: LAMOTRIGINE
     Dosage: 100 MG IN MORNING AND 100 MG AT NIGHT
  15. DILANTIN [Concomitant]
     Active Substance: PHENYTOIN

REACTIONS (32)
  - Blindness [Unknown]
  - Hypersensitivity [Unknown]
  - Swelling face [Unknown]
  - Disorientation [Unknown]
  - Panic attack [Unknown]
  - Screaming [Unknown]
  - Nausea [Unknown]
  - Tremor [Unknown]
  - Cough [Unknown]
  - Dizziness [Unknown]
  - Suicidal ideation [Unknown]
  - Gait inability [Not Recovered/Not Resolved]
  - Eye swelling [Not Recovered/Not Resolved]
  - Influenza like illness [Unknown]
  - Rash [Unknown]
  - Emotional distress [Unknown]
  - Fall [Unknown]
  - Agitation [Unknown]
  - Contusion [Unknown]
  - Condition aggravated [Not Recovered/Not Resolved]
  - Contusion [Not Recovered/Not Resolved]
  - Psychomotor hyperactivity [Unknown]
  - Skin exfoliation [Unknown]
  - Blister [Unknown]
  - Erythema [Unknown]
  - Crying [Not Recovered/Not Resolved]
  - Somnambulism [Unknown]
  - Pain [Not Recovered/Not Resolved]
  - Anxiety [Unknown]
  - Vision blurred [Unknown]
  - Insomnia [Not Recovered/Not Resolved]
  - Lymphadenopathy [Unknown]
